FAERS Safety Report 21092838 (Version 2)
Quarter: 2023Q1

REPORT INFORMATION
  Report Type: Report from Study
  Country: GB (occurrence: GB)
  Receive Date: 20220718
  Receipt Date: 20230210
  Transmission Date: 20230418
  Serious: Yes (Other)
  Sender: FDA-Public Use
  Company Number: GB-NOVARTISPH-NVSC2022GB160997

PATIENT
  Age: 59 Year
  Sex: Female

DRUGS (3)
  1. OMNITROPE [Suspect]
     Active Substance: SOMATROPIN
     Indication: Meningioma
     Dosage: 0.4 MG, QD (AS DIRECTED)
     Route: 065
     Dates: start: 20200326
  2. OMNITROPE [Suspect]
     Active Substance: SOMATROPIN
     Indication: Growth hormone deficiency
  3. WARFARIN [Concomitant]
     Active Substance: WARFARIN
     Indication: Product used for unknown indication
     Dosage: UNK
     Route: 065

REACTIONS (7)
  - Hypothalamo-pituitary disorder [Unknown]
  - Diabetes mellitus [Unknown]
  - Fatigue [Unknown]
  - Injection site pain [Unknown]
  - Malaise [Unknown]
  - Product use in unapproved indication [Unknown]
  - Product supply issue [Unknown]
